FAERS Safety Report 8110295-9 (Version None)
Quarter: 2012Q1

REPORT INFORMATION
  Report Type: 
  Country: None (occurrence: None)
  Receive Date: 20120202
  Receipt Date: 20120125
  Transmission Date: 20120608
  Serious: Yes (Other)
  Sender: FDA-Public Use
  Company Number: CA-ROCHE-1015317

PATIENT
  Sex: Female
  Weight: 86.8 kg

DRUGS (5)
  1. ACETAMINOPHEN [Concomitant]
     Indication: MIGRAINE
     Dates: start: 20090101
  2. PEGINTERFERON ALFA-2A [Suspect]
     Indication: HEPATITIS C
     Dosage: FORM OF ADMINISTRATION LOI
     Route: 058
     Dates: start: 20111004, end: 20111004
  3. COPEGUS [Suspect]
     Indication: HEPATITIS C
     Route: 048
     Dates: start: 20111004, end: 20111010
  4. BI 201335 (HCV PROTEASE INHIBITOR) [Suspect]
     Indication: HEPATITIS C
  5. TYLENOL #1 (CANADA) [Concomitant]
     Indication: MIGRAINE
     Dosage: TYRENOL
     Dates: start: 20090101

REACTIONS (1)
  - ABORTION SPONTANEOUS [None]
